FAERS Safety Report 13214256 (Version 4)
Quarter: 2017Q1

REPORT INFORMATION
  Report Type: Report from Study
  Country: CA (occurrence: CA)
  Receive Date: 20170210
  Receipt Date: 20170310
  Transmission Date: 20170428
  Serious: Yes (Hospitalization, Other)
  Sender: FDA-Public Use
  Company Number: CA-ALEXION-A201701208

PATIENT
  Age: 4 Year
  Sex: Female
  Weight: 16.2 kg

DRUGS (2)
  1. SOLIRIS [Suspect]
     Active Substance: ECULIZUMAB
     Indication: OFF LABEL USE
  2. SOLIRIS [Suspect]
     Active Substance: ECULIZUMAB
     Indication: THROMBOTIC MICROANGIOPATHY
     Dosage: 600 MG, QW
     Route: 042
     Dates: start: 20170114

REACTIONS (6)
  - Pleural effusion [Not Recovered/Not Resolved]
  - General physical health deterioration [Unknown]
  - Off label use [Not Recovered/Not Resolved]
  - Pericardial effusion [Unknown]
  - Drug prescribing error [Recovered/Resolved]
  - Microangiopathy [Not Recovered/Not Resolved]

NARRATIVE: CASE EVENT DATE: 20170114
